FAERS Safety Report 15636125 (Version 2)
Quarter: 2018Q4

REPORT INFORMATION
  Report Type: Report from Study
  Country: CA (occurrence: CA)
  Receive Date: 20181120
  Receipt Date: 20181120
  Transmission Date: 20190205
  Serious: Yes (Hospitalization)
  Sender: FDA-Public Use
  Company Number: CA-B.I. PHARMACEUTICALS,INC./RIDGEFIELD-2018-BI-005047

PATIENT
  Age: 58 Year
  Sex: Male

DRUGS (4)
  1. GILOTRIF [Suspect]
     Active Substance: AFATINIB
     Indication: LUNG CANCER METASTATIC
     Route: 048
     Dates: start: 20180208, end: 20181016
  2. GILOTRIF [Suspect]
     Active Substance: AFATINIB
     Route: 048
  3. GILOTRIF [Suspect]
     Active Substance: AFATINIB
     Dosage: ONE WEEK 40MG ONE DAY, NEXT HE TOOK 40MG FOR TWO DAYS AND THIRD WEEK HE TOOK 40MG FOR THREE DAYS
     Route: 048
  4. GILOTRIF [Suspect]
     Active Substance: AFATINIB
     Route: 048
     Dates: start: 20180625

REACTIONS (21)
  - Recurrent cancer [Unknown]
  - Cough [Recovering/Resolving]
  - Nasal dryness [Not Recovered/Not Resolved]
  - Aphonia [Not Recovered/Not Resolved]
  - EGFR gene mutation [Unknown]
  - Rash erythematous [Not Recovered/Not Resolved]
  - Diarrhoea [Recovered/Resolved]
  - Dental caries [Not Recovered/Not Resolved]
  - Pollakiuria [Unknown]
  - Acne [Recovered/Resolved]
  - Rosacea [Unknown]
  - Epistaxis [Recovered/Resolved]
  - Epistaxis [Not Recovered/Not Resolved]
  - Pruritus [Recovered/Resolved]
  - Thyroxine decreased [Unknown]
  - Off label use [Unknown]
  - Nail disorder [Unknown]
  - Malaise [Unknown]
  - Rash [Recovered/Resolved]
  - Diarrhoea [Recovered/Resolved]
  - Conjunctivitis [Recovered/Resolved]

NARRATIVE: CASE EVENT DATE: 20180208
